FAERS Safety Report 15316440 (Version 1)
Quarter: 2018Q3

REPORT INFORMATION
  Report Type: Spontaneous
  Country: US (occurrence: US)
  Receive Date: 20180816
  Receipt Date: 20180816
  Transmission Date: 20181010
  Serious: Yes (Life-Threatening, Hospitalization, Other)
  Sender: FDA-Public Use
  Company Number: None

PATIENT
  Age: 64 Year
  Sex: Male
  Weight: 92.1 kg

DRUGS (1)
  1. CETUXIMAB. [Suspect]
     Active Substance: CETUXIMAB
     Indication: LARYNGEAL CANCER
     Route: 042
     Dates: start: 20180816, end: 20180816

REACTIONS (3)
  - Respiratory arrest [None]
  - Loss of consciousness [None]
  - Drug hypersensitivity [None]

NARRATIVE: CASE EVENT DATE: 20180816
